FAERS Safety Report 11236537 (Version 1)
Quarter: 2015Q3

REPORT INFORMATION
  Report Type: Report from Study
  Country: BR (occurrence: BR)
  Receive Date: 20150702
  Receipt Date: 20150702
  Transmission Date: 20151125
  Serious: Yes (Other)
  Sender: FDA-Public Use
  Company Number: PHHY2015BR076063

PATIENT
  Age: 9 Year
  Sex: Female
  Weight: 23 kg

DRUGS (1)
  1. RITALIN LA [Suspect]
     Active Substance: METHYLPHENIDATE HYDROCHLORIDE
     Indication: DISTURBANCE IN ATTENTION
     Dosage: 1 DF, QD
     Route: 065
     Dates: start: 2014, end: 20141222

REACTIONS (6)
  - Ovarian disorder [Unknown]
  - Drug abuse [Unknown]
  - Weight gain poor [Recovering/Resolving]
  - Decreased appetite [Unknown]
  - Performance status decreased [Unknown]
  - Female sex hormone level abnormal [Unknown]

NARRATIVE: CASE EVENT DATE: 201504
